FAERS Safety Report 4511456-8 (Version None)
Quarter: 2004Q4

REPORT INFORMATION
  Report Type: 
  Country: None (occurrence: None)
  Receive Date: 20041129
  Receipt Date: 20040818
  Transmission Date: 20050328
  Serious: No
  Sender: FDA-Public Use
  Company Number: US-BRISTOL-MYERS SQUIBB COMPANY-12676300

PATIENT
  Age: 21 Year
  Sex: Female

DRUGS (1)
  1. ABILIFY [Suspect]
     Indication: SCHIZOPHRENIFORM DISORDER
     Dosage: DECREASED TO 15 MG/DAY, THEN DISCONTINUED
     Route: 048

REACTIONS (1)
  - GALACTORRHOEA [None]
